FAERS Safety Report 7224112-2 (Version None)
Quarter: 2011Q1

REPORT INFORMATION
  Report Type: 
  Country: None (occurrence: None)
  Receive Date: 20110106
  Receipt Date: 20110106
  Transmission Date: 20110831
  Serious: Yes (Hospitalization)
  Sender: FDA-Public Use
  Company Number: None

PATIENT
  Age: 54 Year
  Sex: Male
  Weight: 93 kg

DRUGS (3)
  1. ASPIRIN [Suspect]
     Dosage: 81MG DAILY PO  CHRONIC
     Route: 048
  2. COUMADIN [Suspect]
     Dosage: DAILY PO   CHRONIC
     Route: 048
  3. VIT D [Concomitant]

REACTIONS (3)
  - RENAL FAILURE ACUTE [None]
  - DIZZINESS [None]
  - LOWER GASTROINTESTINAL HAEMORRHAGE [None]
